FAERS Safety Report 16385294 (Version 3)
Quarter: 2019Q2

REPORT INFORMATION
  Report Type: Spontaneous
  Country: PL (occurrence: PL)
  Receive Date: 20190603
  Receipt Date: 20190610
  Transmission Date: 20190711
  Serious: Yes (Death, Life-Threatening, Hospitalization, Other)
  Sender: FDA-Public Use
  Company Number: PL-JNJFOC-20190539937

PATIENT
  Age: 49 Year
  Sex: Female

DRUGS (5)
  1. CARBOPLATIN. [Suspect]
     Active Substance: CARBOPLATIN
     Indication: OVARIAN EPITHELIAL CANCER
     Dosage: PER CYCLE LASTING 3 H WITH 3 WEEKS BREAK BETWEEN CHEMOTHERAPY CYCLES; CYCLICAL
     Route: 042
     Dates: start: 201304
  2. PACLITAXEL. [Suspect]
     Active Substance: PACLITAXEL
     Indication: OVARIAN EPITHELIAL CANCER
     Route: 042
     Dates: start: 201304
  3. PACLITAXEL. [Suspect]
     Active Substance: PACLITAXEL
     Indication: OVARIAN EPITHELIAL CANCER
     Dosage: PER CYCLE LASTING 3 H WITH 3 WEEKS BREAK BETWEEN CHEMOTHERAPY CYCLES; CYCLICAL
     Route: 042
     Dates: start: 201505
  4. CAELYX [Suspect]
     Active Substance: DOXORUBICIN HYDROCHLORIDE
     Indication: OVARIAN EPITHELIAL CANCER
     Dosage: PER CYCLE, WITH 3 WEEKS BETWEEN CHEMOTHERAPY CYCLES; CYCLICAL
     Route: 065
     Dates: start: 201412
  5. CARBOPLATIN. [Suspect]
     Active Substance: CARBOPLATIN
     Indication: OVARIAN EPITHELIAL CANCER
     Route: 042
     Dates: start: 201505

REACTIONS (1)
  - Drug ineffective [Unknown]

NARRATIVE: CASE EVENT DATE: 2015
